FAERS Safety Report 7887787-0 (Version None)
Quarter: 2011Q4

REPORT INFORMATION
  Report Type: 
  Country: None (occurrence: None)
  Receive Date: 20111103
  Receipt Date: 20111024
  Transmission Date: 20120403
  Serious: Yes (Hospitalization, Other)
  Sender: FDA-Public Use
  Company Number: CA-JNJFOC-20111011238

PATIENT
  Sex: Male
  Weight: 73 kg

DRUGS (1)
  1. REMICADE [Suspect]
     Indication: CROHN'S DISEASE
     Route: 042
     Dates: start: 20040921

REACTIONS (2)
  - VARICOSE VEIN OPERATION [None]
  - OPEN WOUND [None]
